FAERS Safety Report 6224723-7 (Version None)
Quarter: 2009Q2

REPORT INFORMATION
  Report Type: 
  Country: None (occurrence: None)
  Receive Date: 20090612
  Receipt Date: 20090401
  Transmission Date: 20091009
  Serious: Yes (Other)
  Sender: FDA-Public Use
  Company Number: US-ABBOTT-09P-163-0565004-00

PATIENT
  Sex: Male
  Weight: 56.75 kg

DRUGS (2)
  1. HUMIRA [Suspect]
     Indication: RHEUMATOID ARTHRITIS
     Route: 058
     Dates: start: 20080101, end: 20090116
  2. HUMIRA [Suspect]
     Route: 058
     Dates: start: 20090313

REACTIONS (2)
  - INJECTION SITE HAEMATOMA [None]
  - SINUSITIS [None]
